FAERS Safety Report 7865234-2 (Version None)
Quarter: 2011Q4

REPORT INFORMATION
  Report Type: 
  Country: None (occurrence: None)
  Receive Date: 20111028
  Receipt Date: 20101104
  Transmission Date: 20120403
  Serious: No
  Sender: FDA-Public Use
  Company Number: US-GLAXOSMITHKLINE-A0890889A

PATIENT
  Age: 65 Year
  Sex: Female

DRUGS (4)
  1. ADVAIR DISKUS 100/50 [Suspect]
     Indication: ASTHMA
     Dosage: 1PUFF TWICE PER DAY
     Route: 055
     Dates: start: 20080601
  2. ANTI-CHOLESTEROL MEDICATION [Concomitant]
  3. THYROID MEDICATION [Concomitant]
  4. BLOOD PRESSURE MEDICATION [Concomitant]

REACTIONS (3)
  - ENAMEL ANOMALY [None]
  - DENTAL CARIES [None]
  - COUGH [None]
